FAERS Safety Report 7710442-4 (Version None)
Quarter: 2011Q3

REPORT INFORMATION
  Report Type: 
  Country: None (occurrence: None)
  Receive Date: 20110825
  Receipt Date: 20110817
  Transmission Date: 20111222
  Serious: Yes (Other)
  Sender: FDA-Public Use
  Company Number: US-ELI_LILLY_AND_COMPANY-US201001002647

PATIENT
  Sex: Male
  Weight: 113.38 kg

DRUGS (20)
  1. METFORMIN HCL [Concomitant]
     Dosage: 500 MG, 2/D
  2. SAW PALMETTO [Concomitant]
  3. BYETTA [Suspect]
     Dosage: UNK, UNKNOWN
     Route: 065
     Dates: start: 20060523, end: 20080601
  4. ETODOLAC [Concomitant]
     Dosage: 600 MG, UNK
  5. WELCHOL [Concomitant]
     Dosage: UNK, 2/D
  6. STRATTERA [Concomitant]
  7. RITALIN [Concomitant]
     Dosage: 20 MG, 2/D
  8. BYETTA [Suspect]
     Dosage: 5 UG, EACH MORNING
     Route: 058
     Dates: start: 20060523, end: 20080919
  9. ATENOLOL [Concomitant]
     Dosage: 50 MG, DAILY (1/D)
  10. ASTELIN [Concomitant]
  11. FELODIPINE [Concomitant]
     Dosage: 10 MG, UNK
  12. BYETTA [Suspect]
     Dosage: 10 UG, EACH EVENING
     Route: 058
     Dates: start: 20060523, end: 20080919
  13. GABAPENTIN [Concomitant]
     Dosage: 300 MG, 3/D
  14. HUMALOG [Concomitant]
     Dosage: UNK, AS NEEDED
  15. LANTUS [Concomitant]
  16. ZETIA [Concomitant]
     Dosage: 10 MG, DAILY (1/D)
  17. BYETTA [Suspect]
     Dosage: 10 UG, BID
  18. VARDENAFIL HYDROCHLORIDE (LEVITRA) [Concomitant]
     Dosage: UNK, AS NEEDED
  19. COZAAR [Concomitant]
     Dosage: 100 MG, UNK
  20. CIALIS [Concomitant]

REACTIONS (2)
  - OFF LABEL USE [None]
  - PANCREATITIS ACUTE [None]
